FAERS Safety Report 4353671-2 (Version None)
Quarter: 2004Q2

REPORT INFORMATION
  Report Type: 
  Country: None (occurrence: None)
  Receive Date: 20040430
  Receipt Date: 20040423
  Transmission Date: 20050107
  Serious: Yes (Hospitalization)
  Sender: FDA-Public Use
  Company Number: TPA2004A00375

PATIENT
  Age: 82 Year
  Sex: Male
  Weight: 111.1313 kg

DRUGS (13)
  1. ACTOS [Suspect]
     Indication: DIABETES MELLITUS NON-INSULIN-DEPENDENT
     Dosage: SEE IMAGE
     Route: 048
     Dates: start: 20030101, end: 20040121
  2. ACTOS [Suspect]
     Indication: DIABETES MELLITUS NON-INSULIN-DEPENDENT
     Dosage: SEE IMAGE
     Route: 048
     Dates: start: 20040226
  3. METOPROLOL (METOPROLOL) [Concomitant]
  4. LANTUS [Concomitant]
  5. THYROID TAB [Concomitant]
  6. SYNTHROID (LWVOTHYROXINE SODIUM) [Concomitant]
  7. NOVOLIN N [Concomitant]
  8. FOLTZ (TRIOBE) [Concomitant]
  9. PROTONIX [Concomitant]
  10. AMIODARONE HCL [Concomitant]
  11. FERO-FOLIC (IROFOL C) [Concomitant]
  12. ZETIA (EZETEMIBE) [Concomitant]
  13. KLOR-CON [Concomitant]

REACTIONS (5)
  - ANGINA PECTORIS [None]
  - CORONARY ARTERY OCCLUSION [None]
  - DYSPNOEA EXERTIONAL [None]
  - OEDEMA PERIPHERAL [None]
  - WEIGHT INCREASED [None]
